FAERS Safety Report 5497104-1 (Version None)
Quarter: 2007Q4

REPORT INFORMATION
  Report Type: 
  Country: None (occurrence: None)
  Receive Date: 20071025
  Receipt Date: 20071019
  Transmission Date: 20080405
  Serious: Yes (Other)
  Sender: FDA-Public Use
  Company Number: NL-ASTRAZENECA-2007AC01999

PATIENT
  Age: 948 Month
  Sex: Male

DRUGS (3)
  1. CASODEX [Suspect]
     Indication: PROSTATE CANCER
     Route: 048
     Dates: start: 20060401
  2. SUPREFACT [Suspect]
     Indication: PROSTATIC DISORDER
     Dates: start: 20040718
  3. COZAAR [Suspect]
     Indication: HYPERTENSION
     Dates: start: 20041101

REACTIONS (2)
  - AGEUSIA [None]
  - ANOSMIA [None]
